FAERS Safety Report 26152634 (Version 1)
Quarter: 2025Q4

REPORT INFORMATION
  Report Type: Spontaneous
  Country: US (occurrence: US)
  Receive Date: 20251214
  Receipt Date: 20251214
  Transmission Date: 20260118
  Serious: No
  Sender: Atnahs Healthcare
  Company Number: US-ATNAHS-ATNAHS20250201351

PATIENT
  Age: 61 Year
  Sex: Female
  Weight: 69.7 kg

DRUGS (22)
  1. VALIUM [Suspect]
     Active Substance: DIAZEPAM
     Indication: Breast cancer male
     Dosage: 5 MG
     Dates: start: 20130413
  2. VALIUM [Suspect]
     Active Substance: DIAZEPAM
     Indication: Anxiety
  3. HERCEPTIN [Suspect]
     Active Substance: TRASTUZUMAB
     Indication: Breast cancer male
     Dosage: 260 MG, 1 IN 3 WEEK
     Route: 042
  4. KADCYLA [Suspect]
     Active Substance: ADO-TRASTUZUMAB EMTANSINE
     Indication: Breast cancer male
     Dosage: UNK
     Route: 065
  5. PERJETA [Suspect]
     Active Substance: PERTUZUMAB
     Indication: Breast cancer male
     Dosage: UNK
     Route: 065
  6. AMLODIPINE MALEATE [Concomitant]
     Active Substance: AMLODIPINE MALEATE
     Indication: Product used for unknown indication
     Dosage: 10 MG BY MOUTH DAILY
  7. ANASTROZOLE [Concomitant]
     Active Substance: ANASTROZOLE
     Indication: Product used for unknown indication
     Dosage: 1 MG TABLET TAKE 1 TABLET BY MOUTH DAILY. ORAL
  8. CELECOXIB [Concomitant]
     Active Substance: CELECOXIB
     Indication: Product used for unknown indication
     Dosage: 200 MG CAPSULE TAKE 1 TABLET BY MOUTH DAILY. ORAL
  9. CETIRIZINE [Concomitant]
     Active Substance: CETIRIZINE HYDROCHLORIDE
     Indication: Product used for unknown indication
     Dosage: 10 MG TABLET TAKE 10 MG BY MOUTH 2 (TWO) TIMES A DAY. - ORA
  10. CYCLOSPORINE [Concomitant]
     Active Substance: CYCLOSPORINE
     Indication: Product used for unknown indication
     Dosage: 0.05% OPHTHALMIC EMULSION ADMINISTER 1 DROP INTO BOTH EYES 2 (TWO) TIMES A DAY. - BOTH EYES
  11. ESOMEPRAZOLE [Concomitant]
     Active Substance: ESOMEPRAZOLE
     Indication: Product used for unknown indication
     Dosage: 40 MG DR CAPSULE TAKE 40 MG BY MOUTH DAILY BEFORE MORNING MEAL. ORAL
  12. EZETIMIBE [Concomitant]
     Active Substance: EZETIMIBE
     Indication: Product used for unknown indication
     Dosage: 10 MG TABLET TAKE 10 MG BY MOUTH DAILY. - ORAL
  13. SODIUM FLUORIDE [Concomitant]
     Active Substance: SODIUM FLUORIDE
     Indication: Product used for unknown indication
     Dosage: 1.1% PASTE DENTAL PASTE APPLY 1 APPLICATION TO THE MOUTH OR THROAT DAILY. MOUTH/THROAT
  14. LEVOTHYROXINE [Concomitant]
     Active Substance: LEVOTHYROXINE
     Indication: Product used for unknown indication
     Dosage: 100 MCG TABLET TAKE 100 MCG BY MOUTH DAILY BEFORE MORNING MEAL. - ORAL
  15. LIOTHYRONINE [Concomitant]
     Active Substance: LIOTHYRONINE
     Indication: Product used for unknown indication
     Dosage: 5 MCG TABLET TAKE 5 MCG BY MOUTH DAILY. - ORAL
  16. LOSARTAN [Concomitant]
     Active Substance: LOSARTAN
     Indication: Product used for unknown indication
     Dosage: 100 MG TABLET TAKE 100 MG BY MOUTH EVERY EVENING. - ORAL
  17. MONTELUKAST [Concomitant]
     Active Substance: MONTELUKAST
     Indication: Product used for unknown indication
     Dosage: 10 MG TABLET TAKE 1 TABLET BY MOUTH AT BEDTIME. - ORAL
  18. OLANZAPINE [Concomitant]
     Active Substance: OLANZAPINE
     Indication: Product used for unknown indication
     Dosage: 5 MG TABLET TAKE 1 TABLET (5 MG TOTAL) BY MOUTH AT BEDTIME AS NEEDED (NAUSEA, VOMITING). MAY TAKE DO
     Dates: start: 20240312, end: 20250312
  19. ONDANSETRON [Concomitant]
     Active Substance: ONDANSETRON
     Indication: Product used for unknown indication
     Dosage: 8 MG TABLET 3 END DATE 12/3/2025 TAKE 1 TABLET (8 MG TOTAL) BY MOUTH EVERY 8 (EIGHT) HOURS AS NEEDED
     Dates: start: 20240312, end: 20250312
  20. PROCHLORPERAZINE [Concomitant]
     Active Substance: PROCHLORPERAZINE
     Indication: Product used for unknown indication
     Dosage: 10 MG TABLET 3 12/3/2025 TAKE 1 TABLET (10 MG TOTAL) BY MOUTH EVERY 6 (SIX) HOURS AS NEEDED FOR NAUS
  21. ROSUVASTATIN [Concomitant]
     Active Substance: ROSUVASTATIN
     Indication: Product used for unknown indication
     Dosage: 20 MG TABLET TAKE 1 TABLET BY MOUTH DAILY. - ORAL
     Dates: start: 20230327
  22. SODIUM CHLORIDE [Concomitant]
     Active Substance: SODIUM CHLORIDE
     Indication: Product used for unknown indication
     Dosage: ) 0.65% NASAL SPRAY ADMINISTER 1 SPRAY INTO EACH NOSTRIL AS NEEDED FOR CONGESTION. EACH NOSTRIL

REACTIONS (7)
  - Fatigue [Unknown]
  - Nausea [Unknown]
  - Haemoglobin decreased [Unknown]
  - Hot flush [Unknown]
  - Arthralgia [Unknown]
  - Myalgia [Unknown]
  - Osteopenia [Unknown]
